FAERS Safety Report 21609759 (Version 1)
Quarter: 2022Q4

REPORT INFORMATION
  Report Type: Spontaneous
  Country: US (occurrence: US)
  Receive Date: 20221117
  Receipt Date: 20221117
  Transmission Date: 20230113
  Serious: Yes (Hospitalization)
  Sender: FDA-Public Use
  Company Number: US-PROCTER_AND_GAMBLE-GS22110267

PATIENT
  Age: 51 Year
  Sex: Female

DRUGS (1)
  1. CREST BAKING SODA AND PEROXIDE WHITENING WITH TARTAR PROTECTION [Suspect]
     Active Substance: SODIUM FLUORIDE
     Dosage: LITTLE AMOUNT ON THE TOOTHBRUSH, 3 /DAY
     Route: 002
     Dates: start: 2022, end: 20221104

REACTIONS (11)
  - Oral mucosal blistering [Recovering/Resolving]
  - Gingival blister [Recovering/Resolving]
  - Pyrexia [Unknown]
  - Gingival discomfort [Unknown]
  - Gingival swelling [Unknown]
  - Hypersensitivity [Unknown]
  - Stomatitis [Recovering/Resolving]
  - Noninfective gingivitis [Recovering/Resolving]
  - Mouth swelling [Unknown]
  - Oral disorder [Unknown]
  - Suspected product tampering [Unknown]

NARRATIVE: CASE EVENT DATE: 20220101
